FAERS Safety Report 14202905 (Version 1)
Quarter: 2017Q4

REPORT INFORMATION
  Report Type: Spontaneous
  Country: US (occurrence: None)
  Receive Date: 20171116
  Receipt Date: 20171116
  Transmission Date: 20180321
  Serious: No
  Sender: FDA-Public Use
  Company Number: None

PATIENT
  Age: 61 Year
  Sex: Female

DRUGS (1)
  1. HUMIRA [Suspect]
     Active Substance: ADALIMUMAB
     Indication: PSORIATIC ARTHROPATHY
     Route: 058
     Dates: start: 20171013, end: 20171115

REACTIONS (4)
  - Urinary tract infection [None]
  - Abdominal pain upper [None]
  - Fungal infection [None]
  - Headache [None]

NARRATIVE: CASE EVENT DATE: 20171115
